FAERS Safety Report 9329700 (Version 1)
Quarter: 2013Q2

REPORT INFORMATION
  Report Type: Spontaneous
  Country: US (occurrence: US)
  Receive Date: 20130604
  Receipt Date: 20130604
  Transmission Date: 20140414
  Serious: No
  Sender: FDA-Public Use
  Company Number: US-SANOFI-AVENTIS-2013SA034545

PATIENT
  Age: 77 Year
  Sex: Male

DRUGS (3)
  1. LANTUS SOLOSTAR [Suspect]
     Dosage: DOSE:18 UNIT(S)
     Route: 051
  2. SOLOSTAR [Suspect]
  3. JANUVIA [Suspect]
     Dates: start: 2011

REACTIONS (3)
  - Dizziness [Unknown]
  - Balance disorder [Unknown]
  - Pain [Unknown]
